FAERS Safety Report 20906609 (Version 1)
Quarter: 2022Q2

REPORT INFORMATION
  Report Type: Spontaneous
  Country: US (occurrence: None)
  Receive Date: 20220602
  Receipt Date: 20220602
  Transmission Date: 20220721
  Serious: No
  Sender: FDA-Public Use
  Company Number: None

PATIENT
  Age: 58 Year
  Sex: Male
  Weight: 81 kg

DRUGS (1)
  1. CHLORHEXIDINE GLUCONATE AND ISOPROPYL ALCOHOL [Suspect]
     Active Substance: CHLORHEXIDINE GLUCONATE\ISOPROPYL ALCOHOL
     Indication: Surgery
     Dates: start: 20220208, end: 20220209

REACTIONS (6)
  - Hypotension [None]
  - Hypoxia [None]
  - Application site dermatitis [None]
  - Application site erythema [None]
  - Pruritus [None]
  - Anaphylactic reaction [None]

NARRATIVE: CASE EVENT DATE: 20220310
